FAERS Safety Report 12897699 (Version 3)
Quarter: 2017Q1

REPORT INFORMATION
  Report Type: Spontaneous
  Country: None (occurrence: RU)
  Receive Date: 20161031
  Receipt Date: 20170103
  Transmission Date: 20170428
  Serious: Yes (Other)
  Sender: FDA-Public Use
  Company Number: RU-MERCK KGAA-1059075

PATIENT

DRUGS (1)
  1. NOVOTHYROX [Suspect]
     Active Substance: LEVOTHYROXINE SODIUM

REACTIONS (3)
  - Alopecia [None]
  - Gastrointestinal motility disorder [None]
  - Hyperthyroidism [None]
